FAERS Safety Report 17288607 (Version 1)
Quarter: 2020Q1

REPORT INFORMATION
  Report Type: Spontaneous
  Country: GB (occurrence: GB)
  Receive Date: 20200120
  Receipt Date: 20200120
  Transmission Date: 20200409
  Serious: Yes (Other)
  Sender: FDA-Public Use
  Company Number: NVSC2020GB009169

PATIENT
  Age: 37 Year
  Sex: Female
  Weight: 70 kg

DRUGS (5)
  1. MAXIDEX [Suspect]
     Active Substance: DEXAMETHASONE
     Indication: DRY EYE
     Dosage: 2 GTT, QD, (DROP 1/2 ML)
     Route: 047
     Dates: start: 20180504
  2. LEVOTHYROXINE SODIUM. [Concomitant]
     Active Substance: LEVOTHYROXINE SODIUM
     Indication: PRODUCT USED FOR UNKNOWN INDICATION
     Dosage: UNK
     Route: 065
  3. NAPROXEN. [Concomitant]
     Active Substance: NAPROXEN
     Indication: PRODUCT USED FOR UNKNOWN INDICATION
     Dosage: UNK, PRN, RARELY TAKE DUE TO THE STRENGTH
     Route: 065
  4. PARACETAMOL [Concomitant]
     Active Substance: ACETAMINOPHEN
     Indication: PRODUCT USED FOR UNKNOWN INDICATION
     Dosage: UNK
     Route: 065
  5. DIHYDROCODEINE [Concomitant]
     Active Substance: DIHYDROCODEINE
     Indication: PRODUCT USED FOR UNKNOWN INDICATION
     Dosage: UNK, RARELY TAKE THE DIHYDROCODEINE DUE TO THE STRENGTH
     Route: 065

REACTIONS (2)
  - Pupillary reflex impaired [Not Recovered/Not Resolved]
  - Mydriasis [Not Recovered/Not Resolved]

NARRATIVE: CASE EVENT DATE: 20180514
